FAERS Safety Report 18690641 (Version 4)
Quarter: 2022Q1

REPORT INFORMATION
  Report Type: Other
  Country: CA (occurrence: None)
  Receive Date: 20210101
  Receipt Date: 20220308
  Transmission Date: 20220424
  Serious: Yes (Other)
  Sender: FDA-Public Use
  Company Number: CA-ROCHE-1949927

PATIENT
  Sex: Female

DRUGS (26)
  1. RITUXAN [Suspect]
     Active Substance: RITUXIMAB
     Indication: Vasculitis
     Route: 042
     Dates: start: 20170607
  2. RITUXAN [Suspect]
     Active Substance: RITUXIMAB
     Indication: Sjogren^s syndrome
     Route: 042
     Dates: start: 20180504
  3. RITUXAN [Suspect]
     Active Substance: RITUXIMAB
     Indication: Non-Hodgkin^s lymphoma
     Route: 042
     Dates: start: 20170524, end: 20210908
  4. DIPHENHYDRAMINE [Concomitant]
     Active Substance: DIPHENHYDRAMINE
     Route: 048
     Dates: start: 20170607
  5. ACETAMINOPHEN [Concomitant]
     Active Substance: ACETAMINOPHEN
     Route: 048
  6. METHYLPREDNISOLONE [Concomitant]
     Active Substance: METHYLPREDNISOLONE
     Route: 042
  7. ESTRADIOL [Concomitant]
     Active Substance: ESTRADIOL
  8. TACROLIMUS [Concomitant]
     Active Substance: TACROLIMUS
  9. AMLODIPINE [Concomitant]
     Active Substance: AMLODIPINE BESYLATE
  10. ASPIRIN [Concomitant]
     Active Substance: ASPIRIN
  11. CANDESARTAN [Concomitant]
     Active Substance: CANDESARTAN
  12. COPHYLAC [Concomitant]
  13. DEXILANT [Concomitant]
     Active Substance: DEXLANSOPRAZOLE
  14. DOMPERIDONE [Concomitant]
     Active Substance: DOMPERIDONE
  15. FUROSEMIDE [Concomitant]
     Active Substance: FUROSEMIDE
  16. MAGNESIUM [Concomitant]
     Active Substance: MAGNESIUM
  17. MCAL [Concomitant]
  18. METOPROLOL [Concomitant]
     Active Substance: METOPROLOL
  19. IRON [Concomitant]
     Active Substance: IRON
  20. QUETIAPINE [Concomitant]
     Active Substance: QUETIAPINE
  21. RANITIDINE [Concomitant]
     Active Substance: RANITIDINE
  22. ALBUTEROL [Concomitant]
     Active Substance: ALBUTEROL
  23. SYMBICORT [Concomitant]
     Active Substance: BUDESONIDE\FORMOTEROL FUMARATE DIHYDRATE
  24. SYNTHROID [Concomitant]
     Active Substance: LEVOTHYROXINE SODIUM
  25. TRAZODONE [Concomitant]
     Active Substance: TRAZODONE HYDROCHLORIDE
  26. TYLENOL ARTHRITIS PAIN [Concomitant]
     Active Substance: ACETAMINOPHEN

REACTIONS (27)
  - Migraine [Recovered/Resolved]
  - Nausea [Unknown]
  - Headache [Unknown]
  - Fatigue [Recovered/Resolved]
  - Agitation [Unknown]
  - Insomnia [Unknown]
  - Pneumonia [Recovered/Resolved]
  - Pollakiuria [Not Recovered/Not Resolved]
  - Pain [Not Recovered/Not Resolved]
  - Weight decreased [Unknown]
  - Blood pressure systolic increased [Unknown]
  - Oxygen saturation decreased [Unknown]
  - Nasopharyngitis [Not Recovered/Not Resolved]
  - Oropharyngeal pain [Not Recovered/Not Resolved]
  - Ear pain [Not Recovered/Not Resolved]
  - Cough [Not Recovered/Not Resolved]
  - Bronchitis [Recovered/Resolved]
  - Heart rate decreased [Unknown]
  - Hypertension [Recovered/Resolved]
  - Nervousness [Unknown]
  - Intentional product use issue [Unknown]
  - Off label use [Unknown]
  - Blood pressure diastolic decreased [Unknown]
  - Blood pressure systolic abnormal [Unknown]
  - Blood pressure diastolic abnormal [Unknown]
  - Diarrhoea [Recovered/Resolved]
  - Vomiting [Recovered/Resolved]

NARRATIVE: CASE EVENT DATE: 20180101
